FAERS Safety Report 13350379 (Version 4)
Quarter: 2017Q1

REPORT INFORMATION
  Report Type: Spontaneous
  Country: IT (occurrence: IT)
  Receive Date: 20170320
  Receipt Date: 20170324
  Transmission Date: 20170429
  Serious: Yes (Hospitalization, Other)
  Sender: FDA-Public Use
  Company Number: IT-BRISTOL-MYERS SQUIBB COMPANY-BMS-2017-022385

PATIENT
  Age: 85 Year
  Sex: Male

DRUGS (1)
  1. OPDIVO [Suspect]
     Active Substance: NIVOLUMAB
     Indication: MALIGNANT MELANOMA
     Route: 065

REACTIONS (9)
  - Metastases to gastrointestinal tract [Unknown]
  - Neoplasm [Unknown]
  - Gastric cancer [Unknown]
  - Surgery [Unknown]
  - Drug ineffective [Unknown]
  - Hospitalisation [Unknown]
  - Decreased appetite [Unknown]
  - Weight decreased [Unknown]
  - Intussusception [Unknown]
